FAERS Safety Report 11225251 (Version 1)
Quarter: 2015Q2

REPORT INFORMATION
  Report Type: Spontaneous
  Country: FR (occurrence: FR)
  Receive Date: 20150629
  Receipt Date: 20150629
  Transmission Date: 20150821
  Serious: Yes (Hospitalization)
  Sender: FDA-Public Use
  Company Number: FR-PFIZER INC-2015210732

PATIENT
  Age: 71 Year
  Sex: Female

DRUGS (7)
  1. ISOPTIN [Interacting]
     Active Substance: VERAPAMIL HYDROCHLORIDE
     Indication: HYPERTENSION
     Dosage: 240 MG, DAILY
     Route: 048
     Dates: end: 20150226
  2. VFEND [Interacting]
     Active Substance: VORICONAZOLE
     Dosage: 400 MG, 1X/DAY
     Route: 048
     Dates: start: 20150227
  3. OROCAL VITAMINE D3 [Concomitant]
     Active Substance: CALCIUM CARBONATE\CHOLECALCIFEROL
  4. KARDEGIC [Concomitant]
     Active Substance: ASPIRIN LYSINE
  5. SYMBICORT [Concomitant]
     Active Substance: BUDESONIDE\FORMOTEROL FUMARATE DIHYDRATE
  6. DOLIPRANE [Concomitant]
     Active Substance: ACETAMINOPHEN
     Dosage: UNK, AS NEEDED
  7. VFEND [Suspect]
     Active Substance: VORICONAZOLE
     Dosage: 400 MG, 1X/DAY
     Route: 048
     Dates: start: 20150226, end: 20150226

REACTIONS (2)
  - Hypotension [Recovered/Resolved]
  - Drug interaction [Recovered/Resolved]

NARRATIVE: CASE EVENT DATE: 20150226
